FAERS Safety Report 14573320 (Version 1)
Quarter: 2018Q1

REPORT INFORMATION
  Report Type: Spontaneous
  Country: US (occurrence: US)
  Receive Date: 20180226
  Receipt Date: 20180226
  Transmission Date: 20180509
  Serious: Yes (Hospitalization, Other)
  Sender: FDA-Public Use
  Company Number: US-SHIRE-US201806963

PATIENT
  Sex: Male

DRUGS (2)
  1. GATTEX [Suspect]
     Active Substance: TEDUGLUTIDE\WATER
     Indication: DEVICE RELATED INFECTION
  2. GATTEX [Suspect]
     Active Substance: TEDUGLUTIDE\WATER
     Indication: SHORT-BOWEL SYNDROME
     Route: 065

REACTIONS (7)
  - Neoplasm progression [Unknown]
  - Ill-defined disorder [Unknown]
  - Carbohydrate antigen 19-9 increased [Unknown]
  - Ascites [Unknown]
  - Hepatic steatosis [Unknown]
  - Pancreatic duct dilatation [Unknown]
  - Metastases to liver [Unknown]
